FAERS Safety Report 6142365-9 (Version None)
Quarter: 2009Q2

REPORT INFORMATION
  Report Type: 
  Country: None (occurrence: None)
  Receive Date: 20090403
  Receipt Date: 20090324
  Transmission Date: 20091009
  Serious: Yes (Hospitalization, Other)
  Sender: FDA-Public Use
  Company Number: CA-PFIZER INC-2009187777

PATIENT

DRUGS (7)
  1. BLINDED *PLACEBO [Suspect]
     Indication: RENAL CELL CARCINOMA
     Dosage: UNK
     Route: 048
     Dates: start: 20090120, end: 20090130
  2. BLINDED *SORAFENIB [Suspect]
     Indication: RENAL CELL CARCINOMA
     Dosage: UNK
     Route: 048
     Dates: start: 20090120, end: 20090130
  3. BLINDED SUNITINIB MALATE [Suspect]
     Indication: RENAL CELL CARCINOMA
     Dosage: UNK
     Route: 048
     Dates: start: 20090120, end: 20090130
  4. ACETAMINOPHEN [Concomitant]
     Dosage: 500 MG, AS NEEDED
     Route: 048
     Dates: start: 20081108
  5. CALCIUM [Concomitant]
     Dosage: 500 MG, 1X/DAY
     Route: 048
     Dates: start: 20070101
  6. MICARDIS [Concomitant]
     Dosage: 50 MG, 1X/DAY
     Route: 048
     Dates: start: 20060101
  7. VITAMIN D [Concomitant]
     Dosage: 400 IU, 1X/DAY
     Route: 048
     Dates: start: 20070101

REACTIONS (3)
  - PRURITUS [None]
  - RASH [None]
  - URTICARIA [None]
